FAERS Safety Report 5266120-7 (Version None)
Quarter: 2007Q1

REPORT INFORMATION
  Report Type: 
  Country: None (occurrence: None)
  Receive Date: 20070315
  Receipt Date: 20070307
  Transmission Date: 20070707
  Serious: Yes (Hospitalization)
  Sender: FDA-Public Use
  Company Number: GB-AVENTIS-200711793GDDC

PATIENT
  Age: 50 Year
  Sex: Female

DRUGS (3)
  1. TAXOTERE [Suspect]
     Route: 042
     Dates: start: 20070214, end: 20070214
  2. DEXAMETHASONE [Concomitant]
     Dates: start: 20070214
  3. METOCLOPRAMIDE [Concomitant]
     Route: 048
     Dates: start: 20070214

REACTIONS (10)
  - ABDOMINAL PAIN [None]
  - ASCITES [None]
  - BLOOD ALBUMIN DECREASED [None]
  - DIARRHOEA [None]
  - FLUID RETENTION [None]
  - HEPATIC FUNCTION ABNORMAL [None]
  - HEPATIC PAIN [None]
  - MALAISE [None]
  - NEUTROPENIA [None]
  - RENAL DISORDER [None]
